FAERS Safety Report 7495877-X (Version None)
Quarter: 2011Q2

REPORT INFORMATION
  Report Type: 
  Country: None (occurrence: None)
  Receive Date: 20110523
  Receipt Date: 20110513
  Transmission Date: 20111010
  Serious: Yes (Other)
  Sender: FDA-Public Use
  Company Number: NL-AMGEN-NLDSP2011023536

PATIENT
  Age: 55 Year
  Sex: Male
  Weight: 100 kg

DRUGS (5)
  1. ENBREL [Suspect]
     Indication: RHEUMATOID ARTHRITIS
     Dosage: 50 MG, WEEKLY
     Dates: start: 20101018, end: 20110412
  2. NAPROXEN [Concomitant]
     Dosage: 1000 MG, UNK
     Dates: start: 20090301
  3. ARAVA [Concomitant]
     Dosage: 20 MG, UNK
     Dates: start: 20100701
  4. PLAQUENIL [Concomitant]
     Dosage: 400 MG, UNK
     Dates: start: 20090401
  5. OMEPRAZOLE [Concomitant]
     Dosage: 20 MG, UNK
     Dates: start: 20090301

REACTIONS (2)
  - DRUG INEFFECTIVE [None]
  - RHEUMATOID ARTHRITIS [None]
